FAERS Safety Report 8769945 (Version 1)
Quarter: 2012Q4

REPORT INFORMATION
  Report Type: 
  Country: US (occurrence: US)
  Receive Date: 20120905
  Receipt Date: 20120905
  Transmission Date: 20130627
  Serious: Yes (Other)
  Sender: FDA-Public Use
  Company Number: US-US-EMD SERONO, INC.-7157966

PATIENT
  Sex: Male
  Weight: 117 kg

DRUGS (1)
  1. REBIF [Suspect]
     Indication: MULTIPLE SCLEROSIS
     Route: 058
     Dates: start: 20050427, end: 201202

REACTIONS (2)
  - Renal failure [Recovering/Resolving]
  - Peritonitis [Recovering/Resolving]
